FAERS Safety Report 7199317-X (Version None)
Quarter: 2010Q4

REPORT INFORMATION
  Report Type: 
  Country: None (occurrence: None)
  Receive Date: 20101223
  Receipt Date: 20101223
  Transmission Date: 20110411
  Serious: Yes (Other)
  Sender: FDA-Public Use
  Company Number: None

PATIENT
  Sex: Female
  Weight: 101.6057 kg

DRUGS (1)
  1. OXYBUTYNIN [Suspect]
     Indication: INCONTINENCE
     Dosage: 5 MG 1 DAILY
     Dates: start: 20090122, end: 20090626

REACTIONS (2)
  - CONSTIPATION [None]
  - DYSURIA [None]
